FAERS Safety Report 15246437 (Version 2)
Quarter: 2018Q3

REPORT INFORMATION
  Report Type: Spontaneous
  Country: HU (occurrence: HU)
  Receive Date: 20180806
  Receipt Date: 20180907
  Transmission Date: 20181010
  Serious: Yes (Other)
  Sender: FDA-Public Use
  Company Number: HU-PFIZER INC-2018311443

PATIENT
  Age: 44 Year
  Sex: Male

DRUGS (8)
  1. CARVEDILOL. [Suspect]
     Active Substance: CARVEDILOL
     Dosage: 12.5 MG, TWICE DAILY
  2. FUROSEMIDE. [Concomitant]
     Active Substance: FUROSEMIDE
     Dosage: UNK
  3. POTASSIUM [Concomitant]
     Active Substance: POTASSIUM
     Dosage: UNK
  4. RAMIPRIL. [Suspect]
     Active Substance: RAMIPRIL
     Dosage: 5 MG, TWO TIMES A DAY
  5. SPIRONOLACTONE. [Concomitant]
     Active Substance: SPIRONOLACTONE
     Dosage: UNK
  6. UBIDECARENONE [Concomitant]
     Active Substance: UBIDECARENONE
     Dosage: UNK
  7. ALLOPURINOL. [Suspect]
     Active Substance: ALLOPURINOL
     Dosage: 100 MG, 2X/DAY
  8. WARFARIN [Concomitant]
     Active Substance: WARFARIN
     Dosage: UNK

REACTIONS (15)
  - Atrial tachycardia [Unknown]
  - Tachycardia [Unknown]
  - Tricuspid valve incompetence [Recovering/Resolving]
  - Ejection fraction decreased [Recovering/Resolving]
  - Mitral valve incompetence [Recovering/Resolving]
  - Tachycardia induced cardiomyopathy [Unknown]
  - Oedema peripheral [Recovered/Resolved]
  - Cough [Unknown]
  - Dyspnoea [Unknown]
  - N-terminal prohormone brain natriuretic peptide increased [Recovered/Resolved]
  - General physical health deterioration [Unknown]
  - Hydrothorax [Unknown]
  - Inspiratory capacity decreased [Unknown]
  - Ventricular internal diameter abnormal [Recovering/Resolving]
  - Upper respiratory tract infection [Unknown]

NARRATIVE: CASE EVENT DATE: 201409
